FAERS Safety Report 5947706-0 (Version None)
Quarter: 2008Q4

REPORT INFORMATION
  Report Type: 
  Country: None (occurrence: None)
  Receive Date: 20081110
  Receipt Date: 20081110
  Transmission Date: 20090506
  Serious: No
  Sender: FDA-Public Use
  Company Number: None

PATIENT
  Age: 47 Year
  Sex: Male
  Weight: 77.1115 kg

DRUGS (3)
  1. WYGESIC [Suspect]
     Indication: BURSITIS
     Dosage: 1 TO 2 TABLETS ONCE EVY FOUR HOU PO
     Route: 048
     Dates: start: 19980101
  2. WYGESIC [Suspect]
     Indication: FIBROMYALGIA
     Dosage: 1 TO 2 TABLETS ONCE EVY FOUR HOU PO
     Route: 048
     Dates: start: 19980101
  3. WYGESIC [Suspect]
     Indication: MIGRAINE
     Dosage: 1 TO 2 TABLETS ONCE EVY FOUR HOU PO
     Route: 048
     Dates: start: 19980101

REACTIONS (2)
  - DRUG INEFFECTIVE [None]
  - PRODUCT QUALITY ISSUE [None]
